FAERS Safety Report 4291257-9 (Version None)
Quarter: 2004Q1

REPORT INFORMATION
  Report Type: 
  Country: None (occurrence: None)
  Receive Date: 20040211
  Receipt Date: 20031121
  Transmission Date: 20041129
  Serious: No
  Sender: FDA-Public Use
  Company Number: US-GLAXOSMITHKLINE-A0440797A

PATIENT
  Age: 70 Year
  Sex: Female

DRUGS (5)
  1. PAXIL [Suspect]
     Indication: PANIC DISORDER
     Dosage: 25MG ALTERNATE DAYS
     Route: 048
     Dates: start: 20031117
  2. THEO-DUR [Concomitant]
     Dosage: 24MG TWICE PER DAY
  3. PREDNISONE [Concomitant]
  4. RANITIDINE [Concomitant]
  5. FOSAMAX [Concomitant]

REACTIONS (1)
  - NAUSEA [None]
